FAERS Safety Report 5510787-2 (Version None)
Quarter: 2007Q4

REPORT INFORMATION
  Report Type: 
  Country: None (occurrence: None)
  Receive Date: 20071107
  Receipt Date: 20071031
  Transmission Date: 20080405
  Serious: Yes (Other)
  Sender: FDA-Public Use
  Company Number: 2007334259

PATIENT
  Age: 82 Year
  Sex: Male
  Weight: 71.6683 kg

DRUGS (2)
  1. COOL MINT LISTERINE (MENTHOL, METHYL SALICYLATE, EUCALYPTOL, THYMOL) [Suspect]
     Indication: DENTAL DISORDER PROPHYLAXIS
     Dosage: 5 OR 6 IMES DAILY, ORAL
     Route: 048
     Dates: start: 20070725, end: 20071031
  2. DRUG, SPECIFIED (DRUG, SPECIFIED) [Concomitant]

REACTIONS (3)
  - ACCIDENTAL EXPOSURE [None]
  - BLOOD PRESSURE INCREASED [None]
  - INCORRECT ROUTE OF DRUG ADMINISTRATION [None]
